FAERS Safety Report 7896882-1 (Version None)
Quarter: 2011Q4

REPORT INFORMATION
  Report Type: 
  Country: None (occurrence: None)
  Receive Date: 20111107
  Receipt Date: 20100323
  Transmission Date: 20120403
  Serious: No
  Sender: FDA-Public Use
  Company Number: US-BAYER-201017360NA

PATIENT
  Weight: 83.6 kg

DRUGS (1)
  1. AVELOX [Suspect]
     Indication: SINUSITIS
     Dosage: UNK

REACTIONS (4)
  - LIP SWELLING [None]
  - HYPERSENSITIVITY [None]
  - OEDEMA MOUTH [None]
  - SWELLING FACE [None]
